FAERS Safety Report 12480234 (Version 1)
Quarter: 2016Q2

REPORT INFORMATION
  Report Type: Spontaneous
  Country: US (occurrence: None)
  Receive Date: 20160617
  Receipt Date: 20160617
  Transmission Date: 20160815
  Serious: Yes (Hospitalization, Other)
  Sender: FDA-Public Use
  Company Number: None

PATIENT
  Age: 38 Year
  Sex: Male
  Weight: 81.65 kg

DRUGS (5)
  1. CELEXA [Suspect]
     Active Substance: CITALOPRAM HYDROBROMIDE
  2. ATIVAN [Suspect]
     Active Substance: LORAZEPAM
     Indication: DEPRESSION
  3. ATIVAN [Suspect]
     Active Substance: LORAZEPAM
     Indication: INSOMNIA
  4. AMBIEN [Suspect]
     Active Substance: ZOLPIDEM TARTRATE
  5. ATIVAN [Suspect]
     Active Substance: LORAZEPAM
     Indication: ANXIETY

REACTIONS (2)
  - Tendon rupture [None]
  - Laceration [None]

NARRATIVE: CASE EVENT DATE: 20110614
